FAERS Safety Report 9178242 (Version 1)
Quarter: 2013Q1

REPORT INFORMATION
  Report Type: Spontaneous
  Country: US (occurrence: US)
  Receive Date: 20130321
  Receipt Date: 20130321
  Transmission Date: 20140127
  Serious: Yes (Other)
  Sender: FDA-Public Use
  Company Number: PHEH2013US006405

PATIENT
  Sex: Male

DRUGS (10)
  1. DIOVAN [Suspect]
     Dosage: UNK UKN, UNK
  2. PANTOPRAZOLE [Concomitant]
     Dosage: UNK UKN, UNK
  3. HUMULIN [Concomitant]
     Dosage: UNK UKN, UNK
  4. CLOPIDOGREL [Concomitant]
     Dosage: UNK UKN, UNK
  5. CARVEDILOL [Concomitant]
     Dosage: UNK UKN, UNK
  6. DIGOXIN [Concomitant]
     Dosage: UNK UKN, UNK
  7. NIFEDIAC [Concomitant]
     Dosage: UNK UKN, UNK
  8. LISINOPRIL [Concomitant]
     Dosage: UNK UKN, UNK
  9. METFORMIN [Concomitant]
     Dosage: UNK UKN, UNK
  10. KLOR-CON [Concomitant]
     Dosage: UNK UKN, UNK

REACTIONS (2)
  - Pneumonia [Unknown]
  - Pulmonary vascular disorder [Unknown]
